FAERS Safety Report 18394402 (Version 1)
Quarter: 2020Q4

REPORT INFORMATION
  Report Type: Spontaneous
  Country: US (occurrence: US)
  Receive Date: 20201016
  Receipt Date: 20201016
  Transmission Date: 20210114
  Serious: Yes (Hospitalization, Other)
  Sender: FDA-Public Use
  Company Number: US-ABBVIE-20K-163-3609380-00

PATIENT
  Age: 88 Year
  Sex: Female
  Weight: 53.12 kg

DRUGS (1)
  1. HUMIRA [Suspect]
     Active Substance: ADALIMUMAB
     Indication: RHEUMATOID ARTHRITIS
     Route: 058
     Dates: start: 20201005

REACTIONS (6)
  - Wrong technique in product usage process [Unknown]
  - Skin laceration [Recovering/Resolving]
  - Pneumothorax [Recovering/Resolving]
  - Fall [Recovered/Resolved]
  - Device issue [Unknown]
  - Injection site erythema [Unknown]

NARRATIVE: CASE EVENT DATE: 202010
